FAERS Safety Report 21214280 (Version 1)
Quarter: 2022Q3

REPORT INFORMATION
  Report Type: Spontaneous
  Country: US (occurrence: US)
  Receive Date: 20220816
  Receipt Date: 20220816
  Transmission Date: 20221026
  Serious: No
  Sender: FDA-Public Use
  Company Number: US-SA-SAC20220810000419

PATIENT
  Sex: Female

DRUGS (2)
  1. DUPIXENT [Suspect]
     Active Substance: DUPILUMAB
     Indication: Neurodermatitis
     Dosage: DOSE: 300MG/2ML FREQUENCY: 300 MG/2ML: INJECT 1 SYRINGE SUBCUTANEOUSLY EVERY 14 DAYS
     Route: 058
     Dates: start: 20200128
  2. ZYRTEC [Concomitant]
     Active Substance: CETIRIZINE HYDROCHLORIDE

REACTIONS (1)
  - Neurodermatitis [Not Recovered/Not Resolved]
